FAERS Safety Report 9484521 (Version 1)
Quarter: 2013Q3

REPORT INFORMATION
  Report Type: Spontaneous
  Country: US (occurrence: US)
  Receive Date: 20130828
  Receipt Date: 20130828
  Transmission Date: 20140515
  Serious: No
  Sender: FDA-Public Use
  Company Number: US-ABBOTT-13P-163-1092272-00

PATIENT
  Age: 62 Year
  Sex: Male
  Weight: 124.85 kg

DRUGS (1)
  1. ANDROGEL [Suspect]
     Indication: ERECTILE DYSFUNCTION
     Dosage: (1) 2.5 GRAM PACKET  DAILY
     Dates: start: 20130401

REACTIONS (4)
  - Gallbladder pain [Not Recovered/Not Resolved]
  - Off label use [Not Recovered/Not Resolved]
  - Erectile dysfunction [Not Recovered/Not Resolved]
  - Rash [Recovered/Resolved]
